FAERS Safety Report 8809969 (Version 1)
Quarter: 2012Q4

REPORT INFORMATION
  Report Type: 
  Country: GB (occurrence: GB)
  Receive Date: 20120926
  Receipt Date: 20120926
  Transmission Date: 20130627
  Serious: Yes (Other)
  Sender: FDA-Public Use
  Company Number: GB-009507513-1209GBR009377

PATIENT

DRUGS (2)
  1. IMPLANON [Suspect]
     Dosage: UNK
  2. IMPLANON [Suspect]
     Dosage: UNK

REACTIONS (2)
  - Device breakage [Unknown]
  - Overdose [Unknown]
